FAERS Safety Report 12643327 (Version 2)
Quarter: 2017Q4

REPORT INFORMATION
  Report Type: Spontaneous
  Country: US (occurrence: US)
  Receive Date: 20160811
  Receipt Date: 20171207
  Transmission Date: 20180320
  Serious: Yes (Hospitalization)
  Sender: FDA-Public Use
  Company Number: US-ASTRAZENECA-2016SE51538

PATIENT
  Age: 844 Month
  Sex: Female
  Weight: 77.6 kg

DRUGS (14)
  1. SYMBICORT [Suspect]
     Active Substance: BUDESONIDE\FORMOTEROL FUMARATE DIHYDRATE
     Indication: EMPHYSEMA
     Dosage: 80/4.5MCG INHALER, TWO PUFFS TWICE DAILY
     Route: 055
     Dates: start: 2014
  2. ZIAC [Concomitant]
     Active Substance: BISOPROLOL FUMARATE\HYDROCHLOROTHIAZIDE
     Indication: BLOOD PRESSURE ABNORMAL
     Route: 048
     Dates: start: 2001
  3. SIMVASTATIN. [Concomitant]
     Active Substance: SIMVASTATIN
     Indication: BLOOD CHOLESTEROL INCREASED
     Route: 048
     Dates: start: 2001
  4. ALBUTEROL. [Concomitant]
     Active Substance: ALBUTEROL
     Indication: DYSPNOEA
     Dosage: 0.5ML AS REQUIRED
     Route: 055
     Dates: start: 2013
  5. VENTOLIN HFA [Concomitant]
     Active Substance: ALBUTEROL SULFATE
     Indication: DYSPNOEA
     Dosage: 1 TO 2 PUFFS AS NEEDED
     Route: 055
     Dates: start: 2013
  6. OXYGEN. [Concomitant]
     Active Substance: OXYGEN
     Indication: DYSPNOEA
     Dosage: 2.0L AS REQUIRED
     Route: 055
     Dates: start: 2013
  7. CODEINE [Concomitant]
     Active Substance: CODEINE
     Indication: PROCEDURAL PAIN
     Dosage: AS REQUIRED
     Route: 048
     Dates: start: 201506
  8. ASPIRIN. [Concomitant]
     Active Substance: ASPIRIN
     Indication: CARDIAC DISORDER
     Route: 048
     Dates: start: 2001
  9. XANAX [Concomitant]
     Active Substance: ALPRAZOLAM
     Dosage: 0.25MG AS REQUIRED
     Route: 048
  10. MORPHINE [Concomitant]
     Active Substance: MORPHINE
     Indication: PROCEDURAL PAIN
     Dosage: AS REQUIRED
     Route: 048
     Dates: start: 201506
  11. SYMBICORT [Suspect]
     Active Substance: BUDESONIDE\FORMOTEROL FUMARATE DIHYDRATE
     Indication: EMPHYSEMA
     Dosage: 160-4.5 MCG, 2 INHALATIONS, TWICE A DAY
     Route: 055
     Dates: start: 2014
  12. SYMBICORT [Suspect]
     Active Substance: BUDESONIDE\FORMOTEROL FUMARATE DIHYDRATE
     Indication: CHRONIC OBSTRUCTIVE PULMONARY DISEASE
     Dosage: 160-4.5 MCG, 2 INHALATIONS, TWICE A DAY
     Route: 055
     Dates: start: 2014
  13. SYMBICORT [Suspect]
     Active Substance: BUDESONIDE\FORMOTEROL FUMARATE DIHYDRATE
     Indication: CHRONIC OBSTRUCTIVE PULMONARY DISEASE
     Dosage: 80/4.5MCG INHALER, TWO PUFFS TWICE DAILY
     Route: 055
     Dates: start: 2014
  14. METFORMIN [Concomitant]
     Active Substance: METFORMIN HYDROCHLORIDE
     Indication: BLOOD GLUCOSE INCREASED
     Route: 048
     Dates: start: 2013

REACTIONS (16)
  - Vulvovaginal burning sensation [Unknown]
  - Thymoma [Unknown]
  - Procedural pain [Recovered/Resolved]
  - Skin atrophy [Unknown]
  - Loss of consciousness [Unknown]
  - Intentional product misuse [Recovered/Resolved]
  - Vulvovaginal discomfort [Not Recovered/Not Resolved]
  - Vulvovaginal pain [Unknown]
  - Skin haemorrhage [Unknown]
  - Oxygen therapy [Unknown]
  - Off label use [Unknown]
  - Product use in unapproved indication [Unknown]
  - Dyspnoea [Unknown]
  - Myasthenia gravis [Unknown]
  - Skin discolouration [Unknown]
  - Peripheral swelling [Unknown]

NARRATIVE: CASE EVENT DATE: 201305
